FAERS Safety Report 7991604-8 (Version None)
Quarter: 2011Q4

REPORT INFORMATION
  Report Type: 
  Country: None (occurrence: None)
  Receive Date: 20111219
  Receipt Date: 20110929
  Transmission Date: 20120403
  Serious: No
  Sender: FDA-Public Use
  Company Number: US-ALLERGAN-1112978US

PATIENT
  Age: 65 Year
  Sex: Male

DRUGS (1)
  1. LUMIGAN [Suspect]
     Indication: GLAUCOMA
     Dosage: 1 GTT, UNKNOWN
     Route: 047
     Dates: start: 20110903, end: 20110901

REACTIONS (1)
  - EYE IRRITATION [None]
